FAERS Safety Report 4659866-2 (Version None)
Quarter: 2005Q2

REPORT INFORMATION
  Report Type: 
  Country: None (occurrence: None)
  Receive Date: 20050502
  Receipt Date: 20041029
  Transmission Date: 20051028
  Serious: Yes (Other)
  Sender: FDA-Public Use
  Company Number: US016138

PATIENT
  Age: 69 Year
  Sex: Male
  Weight: 83.5 kg

DRUGS (5)
  1. PROCRIT [Suspect]
     Indication: ANAEMIA OF MALIGNANT DISEASE
     Dosage: 40000 U, WEEKLY, SC
     Route: 058
     Dates: start: 19991001, end: 20020528
  2. LEUKERAN [Concomitant]
  3. ATORVASTATIN CALCIUM [Concomitant]
  4. PREDNISONE TAB [Concomitant]
  5. IMMUNOGLOBULIN HUMAN NORMAL [Concomitant]

REACTIONS (3)
  - COOMBS INDIRECT TEST POSITIVE [None]
  - THERAPEUTIC RESPONSE DECREASED [None]
  - THROMBOCYTOPENIA [None]
